FAERS Safety Report 9906243 (Version 1)
Quarter: 2014Q1

REPORT INFORMATION
  Report Type: Spontaneous
  Country: US (occurrence: US)
  Receive Date: 20140218
  Receipt Date: 20140218
  Transmission Date: 20141002
  Serious: Yes (Hospitalization)
  Sender: FDA-Public Use
  Company Number: US-ABBVIE-14P-163-1201059-00

PATIENT
  Age: 29 Year
  Sex: Female
  Weight: 94 kg

DRUGS (1)
  1. DIVALPROEX [Suspect]
     Indication: MOOD SWINGS
     Dosage: AT BEDTIME
     Route: 048
     Dates: start: 200901

REACTIONS (1)
  - Psychotic disorder [Not Recovered/Not Resolved]
